FAERS Safety Report 6338500-X (Version None)
Quarter: 2009Q3

REPORT INFORMATION
  Report Type: 
  Country: None (occurrence: None)
  Receive Date: 20090901
  Receipt Date: 20090817
  Transmission Date: 20100115
  Serious: Yes (Other)
  Sender: FDA-Public Use
  Company Number: IT-2009-1746

PATIENT
  Age: 85 Year
  Sex: Male

DRUGS (1)
  1. NAVELBINE [Suspect]
     Indication: KAPOSI'S SARCOMA
     Dosage: 39.5 MG IV
     Route: 042
     Dates: start: 20051001

REACTIONS (2)
  - INJECTION SITE DISCOLOURATION [None]
  - RASH ERYTHEMATOUS [None]
